FAERS Safety Report 11416504 (Version 1)
Quarter: 2015Q3

REPORT INFORMATION
  Report Type: Spontaneous
  Country: CN (occurrence: CN)
  Receive Date: 20150825
  Receipt Date: 20150825
  Transmission Date: 20151125
  Serious: Yes (Other)
  Sender: FDA-Public Use
  Company Number: PHHY2015CN101379

PATIENT
  Age: 75 Year
  Sex: Male

DRUGS (8)
  1. EPIRUBICIN [Concomitant]
     Active Substance: EPIRUBICIN
     Indication: B-CELL LYMPHOMA
     Route: 065
  2. RITUXIMAB [Suspect]
     Active Substance: RITUXIMAB
     Indication: B-CELL LYMPHOMA
     Route: 065
  3. VINCRISTINE [Concomitant]
     Active Substance: VINCRISTINE
     Indication: B-CELL LYMPHOMA
     Route: 065
  4. FLUDARABINE [Suspect]
     Active Substance: FLUDARABINE PHOSPHATE
     Indication: B-CELL LYMPHOMA
     Route: 065
  5. PREDNISOLONE. [Concomitant]
     Active Substance: PREDNISOLONE
     Indication: B-CELL LYMPHOMA
     Route: 065
  6. INOTUZUMAB [Concomitant]
     Active Substance: INOTUZUMAB OZOGAMICIN
     Indication: B-CELL LYMPHOMA
     Route: 065
  7. DEXAMETHASONE. [Suspect]
     Active Substance: DEXAMETHASONE
     Indication: B-CELL LYMPHOMA
     Route: 065
  8. CYCLOPHOSPHAMIDE. [Concomitant]
     Active Substance: CYCLOPHOSPHAMIDE
     Indication: B-CELL LYMPHOMA
     Route: 065

REACTIONS (11)
  - Retinal degeneration [Unknown]
  - Retinal infiltrates [Unknown]
  - Drug effect incomplete [Unknown]
  - Vasculitis [Unknown]
  - Cytomegalovirus chorioretinitis [Recovered/Resolved with Sequelae]
  - Visual acuity reduced [Unknown]
  - Lymphopenia [Unknown]
  - Iridocyclitis [Unknown]
  - Vitritis [Unknown]
  - Haemorrhage [Unknown]
  - Hypogammaglobulinaemia [Unknown]
